FAERS Safety Report 7268165-4 (Version None)
Quarter: 2011Q1

REPORT INFORMATION
  Report Type: 
  Country: None (occurrence: None)
  Receive Date: 20110201
  Receipt Date: 20110114
  Transmission Date: 20110831
  Serious: Yes (Hospitalization)
  Sender: FDA-Public Use
  Company Number: CH-ASTRAZENECA-2011SE04229

PATIENT
  Age: 21 Year
  Sex: Female

DRUGS (6)
  1. DEPAKENE [Concomitant]
     Dosage: 1500MG
     Route: 048
  2. SEROQUEL XR [Suspect]
     Dosage: 350MG
     Route: 048
  3. CIPRALEX [Suspect]
     Dosage: 10MG
     Route: 048
  4. TEMESTA [Concomitant]
     Dosage: 1-10MG
     Route: 048
  5. CIPRALEX [Suspect]
     Dosage: 20MG
     Route: 048
  6. SEROQUEL XR [Suspect]
     Dosage: 100MG
     Route: 048

REACTIONS (6)
  - GALACTORRHOEA [None]
  - BLOOD PROLACTIN INCREASED [None]
  - BREAST DISCOMFORT [None]
  - BREAST SWELLING [None]
  - BREAST TENDERNESS [None]
  - BREAST PAIN [None]
